FAERS Safety Report 21136771 (Version 1)
Quarter: 2022Q3

REPORT INFORMATION
  Report Type: Spontaneous
  Country: US (occurrence: US)
  Receive Date: 20220727
  Receipt Date: 20220727
  Transmission Date: 20221027
  Serious: Yes (Death, Other)
  Sender: FDA-Public Use
  Company Number: US-BAYER-2022A103005

PATIENT
  Sex: Female

DRUGS (1)
  1. ALEVE [Suspect]
     Active Substance: NAPROXEN SODIUM
     Indication: Back pain
     Dosage: 4 DF, QD

REACTIONS (5)
  - Death [Fatal]
  - Renal disorder [Unknown]
  - Incorrect dose administered [Unknown]
  - Dialysis [None]
  - Food refusal [None]
